FAERS Safety Report 6124292-6 (Version None)
Quarter: 2009Q1

REPORT INFORMATION
  Report Type: 
  Country: None (occurrence: None)
  Receive Date: 20090317
  Receipt Date: 20080423
  Transmission Date: 20090719
  Serious: Yes (Other)
  Sender: FDA-Public Use
  Company Number: 8043886

PATIENT
  Age: 25 Year
  Sex: Female

DRUGS (7)
  1. KEPPRA [Suspect]
     Indication: GRAND MAL CONVULSION
     Dosage: 500 MG 2/D
     Dates: start: 20060101, end: 20070901
  2. KEPPRA [Suspect]
     Indication: HEAD INJURY
     Dosage: 500 MG 2/D
     Dates: start: 20060101, end: 20070901
  3. KEPPRA [Suspect]
     Indication: GRAND MAL CONVULSION
     Dosage: 1500 MG
     Dates: start: 20070901, end: 20071201
  4. KEPPRA [Suspect]
     Indication: HEAD INJURY
     Dosage: 1500 MG
     Dates: start: 20070901, end: 20071201
  5. KEPPRA [Suspect]
     Indication: GRAND MAL CONVULSION
     Dosage: 1000 MG 2/D
     Dates: start: 20071201
  6. KEPPRA [Suspect]
     Indication: HEAD INJURY
     Dosage: 1000 MG 2/D
     Dates: start: 20071201
  7. VITAMIN TAB [Concomitant]

REACTIONS (4)
  - DRUG EXPOSURE DURING PREGNANCY [None]
  - PREGNANCY [None]
  - PREMATURE LABOUR [None]
  - SIMPLE PARTIAL SEIZURES [None]
